FAERS Safety Report 6698086-7 (Version None)
Quarter: 2010Q2

REPORT INFORMATION
  Report Type: 
  Country: None (occurrence: None)
  Receive Date: 20100427
  Receipt Date: 20100426
  Transmission Date: 20101027
  Serious: Yes (Death)
  Sender: FDA-Public Use
  Company Number: US-KINGPHARMUSA00001-K200901223

PATIENT
  Age: 28 Year
  Sex: Male
  Weight: 99.32 kg

DRUGS (17)
  1. EMBEDA [Suspect]
     Indication: BACK PAIN
     Dosage: 60 MG, BID
     Route: 048
     Dates: start: 20090928
  2. AVINZA [Suspect]
     Indication: BACK PAIN
     Dosage: 60 MG, BID
     Route: 048
     Dates: start: 20090901
  3. AVINZA [Suspect]
     Dosage: 60 MG, QD
     Route: 048
     Dates: start: 20090924, end: 20090901
  4. GABAPENTIN [Concomitant]
     Dosage: 300 MG, TID
  5. CLARINEX [Concomitant]
     Indication: SEASONAL ALLERGY
     Dosage: 5 MG, QD
  6. ALBUTEROL [Concomitant]
     Dosage: UNK
  7. ADVAIR DISKUS 100/50 [Concomitant]
     Dosage: ^50/500,^ BID
  8. CYMBALTA [Concomitant]
     Dosage: UNK
  9. ALLEGRA D 24 HOUR [Concomitant]
     Indication: SEASONAL ALLERGY
     Dosage: UNK
  10. LITHIUM CARBONATE [Concomitant]
     Dosage: UNK
     Dates: start: 20090925
  11. ALPRAZOLAM [Concomitant]
     Dosage: 0.5 MG, TID
  12. CYCLOBENZAPRINE HYDROCHLORIDE [Concomitant]
     Dosage: 10 MG, TID
  13. NEXIUM [Concomitant]
     Dosage: 40 MG, BID
  14. LOMOTIL [Concomitant]
     Dosage: 2.5 MG, PRN
  15. BENZONATATE [Concomitant]
     Dosage: 200 MG, PRN
  16. IBUPROFEN [Concomitant]
     Indication: BACK PAIN
     Dosage: 800 MG, TID
     Route: 048
  17. NASAL PREPARATIONS [Concomitant]
     Dosage: UNK
     Route: 045

REACTIONS (2)
  - ADVERSE DRUG REACTION [None]
  - DEATH [None]
